FAERS Safety Report 5117835-2 (Version None)
Quarter: 2006Q3

REPORT INFORMATION
  Report Type: 
  Country: None (occurrence: None)
  Receive Date: 20060929
  Receipt Date: 20060918
  Transmission Date: 20061208
  Serious: Yes (Hospitalization)
  Sender: FDA-Public Use
  Company Number: FR-AMGEN-UK193927

PATIENT
  Age: 22 Year
  Sex: Male

DRUGS (2)
  1. KINERET [Suspect]
     Indication: JUVENILE ARTHRITIS
     Route: 065
     Dates: start: 20060401, end: 20060401
  2. CORTANCYL [Concomitant]
     Route: 048

REACTIONS (1)
  - RASH GENERALISED [None]
